FAERS Safety Report 14202306 (Version 3)
Quarter: 2019Q1

REPORT INFORMATION
  Report Type: Report from Study
  Country: US (occurrence: US)
  Receive Date: 20171117
  Receipt Date: 20190111
  Transmission Date: 20190417
  Serious: Yes (Hospitalization)
  Sender: FDA-Public Use
  Company Number: US-ACTELION-A-US2017-162413

PATIENT
  Age: 65 Year
  Sex: Female

DRUGS (2)
  1. TRACLEER [Suspect]
     Active Substance: BOSENTAN
     Indication: PULMONARY ARTERIAL HYPERTENSION
     Dosage: 125 MG, BID
     Route: 048
     Dates: start: 20141203
  2. SILDENAFIL. [Concomitant]
     Active Substance: SILDENAFIL
     Dosage: UNK

REACTIONS (10)
  - Wheezing [Unknown]
  - Right ventricular failure [Unknown]
  - Pyrexia [Unknown]
  - Dyspnoea [Recovering/Resolving]
  - Asthenia [Unknown]
  - Acute respiratory failure [Unknown]
  - Cardiac failure congestive [Unknown]
  - Atrial fibrillation [Recovering/Resolving]
  - Fatigue [Unknown]
  - Respiratory failure [Unknown]

NARRATIVE: CASE EVENT DATE: 20171106
